FAERS Safety Report 26037012 (Version 1)
Quarter: 2025Q4

REPORT INFORMATION
  Report Type: Spontaneous
  Country: US (occurrence: US)
  Receive Date: 20251112
  Receipt Date: 20251112
  Transmission Date: 20260117
  Serious: Yes (Other)
  Sender: BAYER HEALTHCARE LLC
  Company Number: US-BAYER-2025A149631

PATIENT
  Sex: Female

DRUGS (1)
  1. ALKA-SELTZER PLUS SEVERE COUGH MUCUS AND CONGESTION LIQUID GELS [Suspect]
     Active Substance: ACETAMINOPHEN\DEXTROMETHORPHAN HYDROBROMIDE\GUAIFENESIN\PHENYLEPHRINE HYDROCHLORIDE
     Indication: Pharyngeal swelling
     Dosage: UNK

REACTIONS (3)
  - Foreign body in throat [Unknown]
  - Product size issue [Unknown]
  - Dysphagia [Unknown]
